FAERS Safety Report 16008204 (Version 4)
Quarter: 2019Q2

REPORT INFORMATION
  Report Type: Spontaneous
  Country: US (occurrence: US)
  Receive Date: 20190225
  Receipt Date: 20190530
  Transmission Date: 20190711
  Serious: Yes (Other)
  Sender: FDA-Public Use
  Company Number: US-GLAXOSMITHKLINE-US2019030644

PATIENT
  Age: 34 Year
  Sex: Female

DRUGS (3)
  1. BENLYSTA [Suspect]
     Active Substance: BELIMUMAB
     Indication: PRODUCT USED FOR UNKNOWN INDICATION
     Dosage: 200 MG, UNK
     Route: 058
     Dates: start: 20190216, end: 2019
  2. BENLYSTA [Suspect]
     Active Substance: BELIMUMAB
     Indication: PRODUCT USED FOR UNKNOWN INDICATION
     Dosage: 520 MG, CYC
     Route: 043
     Dates: start: 20190522
  3. CELLCEPT [Suspect]
     Active Substance: MYCOPHENOLATE MOFETIL\MYCOPHENOLATE MOFETIL HYDROCHLORIDE
     Indication: PRODUCT USED FOR UNKNOWN INDICATION
     Dosage: UNK
     Route: 065

REACTIONS (14)
  - Salivary gland disorder [Unknown]
  - Migraine [Unknown]
  - Anxiety [Unknown]
  - Coccydynia [Not Recovered/Not Resolved]
  - Quality of life decreased [Unknown]
  - Headache [Unknown]
  - Nausea [Not Recovered/Not Resolved]
  - Vomiting [Unknown]
  - Blood potassium decreased [Unknown]
  - Chills [Unknown]
  - Diarrhoea [Unknown]
  - Lupus nephritis [Unknown]
  - Swelling face [Unknown]
  - Feeling hot [Unknown]

NARRATIVE: CASE EVENT DATE: 20190217
